FAERS Safety Report 8088015-6 (Version None)
Quarter: 2012Q1

REPORT INFORMATION
  Report Type: 
  Country: None (occurrence: None)
  Receive Date: 20120128
  Receipt Date: 20110526
  Transmission Date: 20120608
  Serious: No
  Sender: FDA-Public Use
  Company Number: US-ABBOTT-11P-163-0728895-00

PATIENT
  Age: 39 Year
  Sex: Male
  Weight: 160.72 kg

DRUGS (3)
  1. CLOBETASOL [Concomitant]
     Indication: PSORIASIS
  2. HUMIRA [Suspect]
     Indication: PSORIASIS
     Route: 058
     Dates: start: 20080101
  3. WESTCORT [Concomitant]
     Indication: PSORIASIS

REACTIONS (5)
  - MYALGIA [None]
  - FEELING HOT [None]
  - NASAL CONGESTION [None]
  - HYPERHIDROSIS [None]
  - INFLUENZA LIKE ILLNESS [None]
